FAERS Safety Report 10182837 (Version 1)
Quarter: 2014Q2

REPORT INFORMATION
  Report Type: Spontaneous
  Country: IR (occurrence: IR)
  Receive Date: 20140520
  Receipt Date: 20140520
  Transmission Date: 20141212
  Serious: Yes (Hospitalization)
  Sender: FDA-Public Use
  Company Number: IR-SA-2014SA061352

PATIENT
  Age: 12 Year
  Sex: Female

DRUGS (8)
  1. RIFAMPICIN [Suspect]
     Indication: DISSEMINATED TUBERCULOSIS
     Route: 065
  2. RIFAMPICIN [Suspect]
     Indication: DISSEMINATED TUBERCULOSIS
     Dosage: LOWER DOSE
     Route: 065
  3. ISONIAZID [Suspect]
     Indication: DISSEMINATED TUBERCULOSIS
     Route: 065
  4. VANCOMYCIN [Concomitant]
  5. METRONIDAZOLE [Concomitant]
  6. CEFTRIAXONE [Concomitant]
  7. ETHAMBUTOL [Concomitant]
     Indication: DISSEMINATED TUBERCULOSIS
  8. PYRAZINAMIDE [Concomitant]
     Indication: DISSEMINATED TUBERCULOSIS

REACTIONS (24)
  - Upper gastrointestinal haemorrhage [Unknown]
  - Abdominal pain [Unknown]
  - Haematemesis [Unknown]
  - Gastritis [Unknown]
  - Hyperuricaemia [Unknown]
  - Dehydration [Unknown]
  - Pancreatitis [Unknown]
  - Amylase increased [Unknown]
  - Lipase increased [Unknown]
  - Regurgitation [Unknown]
  - Haemolytic anaemia [Unknown]
  - Depression [Unknown]
  - Agitation [Unknown]
  - Depressed mood [Unknown]
  - Apathy [Unknown]
  - Irritability [Unknown]
  - Splenomegaly [Unknown]
  - Hepatitis [Unknown]
  - Ocular icterus [Unknown]
  - Hepatic enzyme increased [Unknown]
  - Ocular icterus [Unknown]
  - Weight decreased [Unknown]
  - Hyperbilirubinaemia [Unknown]
  - Hepatomegaly [Unknown]
